FAERS Safety Report 4459376-1 (Version None)
Quarter: 2004Q3

REPORT INFORMATION
  Report Type: 
  Country: None (occurrence: None)
  Receive Date: 20040927
  Receipt Date: 20040916
  Transmission Date: 20050211
  Serious: Yes (Hospitalization)
  Sender: FDA-Public Use
  Company Number: FR-ROCHE-380662

PATIENT
  Age: 20 Year
  Sex: Female
  Weight: 48 kg

DRUGS (1)
  1. ROACCUTANE [Suspect]
     Indication: SEBACEOUS GLAND DISORDER
     Route: 048
     Dates: start: 20030912, end: 20040512

REACTIONS (2)
  - DEPRESSION [None]
  - SUICIDAL IDEATION [None]
